FAERS Safety Report 8327032-5 (Version None)
Quarter: 2012Q2

REPORT INFORMATION
  Report Type: 
  Country: None (occurrence: None)
  Receive Date: 20120501
  Receipt Date: 20111129
  Transmission Date: 20120825
  Serious: No
  Sender: FDA-Public Use
  Company Number: US-SANOFI-AVENTIS-2011SA079345

PATIENT
  Sex: Male

DRUGS (3)
  1. SOLOSTAR [Suspect]
     Dates: start: 20110901
  2. APIDRA [Suspect]
     Dosage: TWO MONTHS AGO.
     Route: 058
     Dates: start: 20110901
  3. LANTUS [Concomitant]

REACTIONS (1)
  - VISUAL ACUITY REDUCED [None]
